FAERS Safety Report 14646915 (Version 1)
Quarter: 2018Q1

REPORT INFORMATION
  Report Type: Spontaneous
  Country: FR (occurrence: FR)
  Receive Date: 20180316
  Receipt Date: 20180316
  Transmission Date: 20180509
  Serious: Yes (Other)
  Sender: FDA-Public Use
  Company Number: FR-MERCK KGAA-2043903

PATIENT
  Age: 38 Year
  Sex: Female

DRUGS (1)
  1. NOVOTHYROX [Suspect]
     Active Substance: LEVOTHYROXINE SODIUM
     Indication: HYPOTHYROIDISM

REACTIONS (18)
  - Loss of personal independence in daily activities [None]
  - Memory impairment [None]
  - Apathy [None]
  - Blood pressure decreased [None]
  - Somnolence [None]
  - Arthralgia [None]
  - Fatigue [None]
  - Alopecia [None]
  - Constipation [None]
  - Mood swings [None]
  - Hypothyroidism [None]
  - Blood thyroid stimulating hormone increased [None]
  - Weight decreased [None]
  - Irritability [None]
  - Headache [None]
  - Pain [None]
  - Pain of skin [None]
  - Depression [None]

NARRATIVE: CASE EVENT DATE: 20170921
